FAERS Safety Report 19611465 (Version 4)
Quarter: 2022Q2

REPORT INFORMATION
  Report Type: Report from Study
  Country: US (occurrence: US)
  Receive Date: 20210726
  Receipt Date: 20220530
  Transmission Date: 20220721
  Serious: Yes (Hospitalization, Other)
  Sender: FDA-Public Use
  Company Number: US-TAKEDA-US201619433

PATIENT
  Age: 56 Year
  Sex: Male
  Weight: 53 kg

DRUGS (10)
  1. TEDUGLUTIDE [Suspect]
     Active Substance: TEDUGLUTIDE
     Indication: Short-bowel syndrome
     Dosage: 2.4 UNKNOWN, 1X/DAY:QD
     Route: 042
     Dates: start: 20140626, end: 20140901
  2. TEDUGLUTIDE [Suspect]
     Active Substance: TEDUGLUTIDE
     Indication: Short-bowel syndrome
     Dosage: 2.4 UNKNOWN, 1X/DAY:QD
     Route: 042
     Dates: start: 20140626, end: 20140901
  3. TEDUGLUTIDE [Suspect]
     Active Substance: TEDUGLUTIDE
     Indication: Short-bowel syndrome
     Dosage: 2.4 UNKNOWN, 1X/DAY:QD
     Route: 042
     Dates: start: 20140626, end: 20140901
  4. TEDUGLUTIDE [Suspect]
     Active Substance: TEDUGLUTIDE
     Indication: Short-bowel syndrome
     Dosage: 2.4 UNKNOWN, 1X/DAY:QD
     Route: 042
     Dates: start: 20140626, end: 20140901
  5. LEVOTHYROXINE [Concomitant]
     Active Substance: LEVOTHYROXINE
     Indication: Hypothyroidism
     Dosage: 125.0 ?G, 1X/DAY:QD
     Route: 048
     Dates: start: 20150102
  6. CYANOCOBALAMIN [Concomitant]
     Active Substance: CYANOCOBALAMIN
     Indication: Supplementation therapy
     Dosage: 1000.0 ?G, OTHER
     Route: 030
     Dates: start: 20150102
  7. PREDNISOLONE ACETATE [Concomitant]
     Active Substance: PREDNISOLONE ACETATE
     Indication: Candida endophthalmitis
     Dosage: 1 MILLILITER, QID
     Route: 047
  8. SANDOSTATIN LAR DEPOT [Concomitant]
     Active Substance: OCTREOTIDE ACETATE
     Indication: Diarrhoea
     Dosage: 20 MILLIGRAM, EVERY 28 DAYS
     Route: 030
     Dates: start: 20180104
  9. VITAMINS [Concomitant]
     Active Substance: VITAMINS
     Indication: Short-bowel syndrome
     Dosage: 2 DOSAGE FORM, QD
     Route: 048
  10. ACETAMINOPHEN [Concomitant]
     Active Substance: ACETAMINOPHEN
     Indication: Arthritis bacterial
     Dosage: 325 MILLIGRAM, PRN
     Route: 048
     Dates: start: 20180305, end: 20190220

REACTIONS (5)
  - Systemic candida [Recovered/Resolved]
  - Vascular device infection [Recovered/Resolved]
  - Enterococcal infection [Recovered/Resolved]
  - Septic shock [Recovered/Resolved]
  - Escherichia bacteraemia [Recovered/Resolved]

NARRATIVE: CASE EVENT DATE: 20150825
